FAERS Safety Report 24128412 (Version 2)
Quarter: 2024Q4

REPORT INFORMATION
  Report Type: Spontaneous
  Country: US (occurrence: US)
  Receive Date: 20240723
  Receipt Date: 20241021
  Transmission Date: 20250114
  Serious: Yes (Death, Other)
  Sender: BRISTOL-MYERS SQUIBB COMPANY
  Company Number: US-BRISTOL-MYERS SQUIBB COMPANY-2024-116576

PATIENT
  Age: 65 Year
  Sex: Female

DRUGS (6)
  1. OPDIVO [Suspect]
     Active Substance: NIVOLUMAB
     Indication: Metastases to lung
     Dosage: DOSE : 94MG | 283MG;     FREQ : EVERY 3 WEEKS | EVERY 3 WEEKS?STRENGTH: 100MG, 240MG VIAL
  2. OPDIVO [Suspect]
     Active Substance: NIVOLUMAB
     Dosage: STRENGTH: 100MG, 240MG VIAL
  3. YERVOY [Suspect]
     Active Substance: IPILIMUMAB
     Indication: Metastases to lung
     Dosage: DOSE : 94MG | 283MG;     FREQ : EVERY 3 WEEKS | EVERY 3 WEEKS?STRENGTH: 200MG, 250MG VIAL
  4. YERVOY [Suspect]
     Active Substance: IPILIMUMAB
     Dosage: STRENGTH: 200MG, 250MG VIAL
  5. LASIX [Concomitant]
     Active Substance: FUROSEMIDE
     Indication: Product used for unknown indication
  6. DIOVAN [Concomitant]
     Active Substance: VALSARTAN
     Indication: Product used for unknown indication

REACTIONS (2)
  - Death [Fatal]
  - Off label use [Unknown]

NARRATIVE: CASE EVENT DATE: 20240708
